FAERS Safety Report 7929329-7 (Version None)
Quarter: 2011Q4

REPORT INFORMATION
  Report Type: 
  Country: None (occurrence: None)
  Receive Date: 20111121
  Receipt Date: 20111114
  Transmission Date: 20120403
  Serious: No
  Sender: FDA-Public Use
  Company Number: US-BIOGENIDEC-2011BI043477

PATIENT
  Age: 60 Year
  Sex: Female

DRUGS (2)
  1. TYSABRI [Suspect]
     Indication: MULTIPLE SCLEROSIS
     Route: 042
     Dates: start: 20100108
  2. TYSABRI [Suspect]
     Route: 042
     Dates: start: 20080611, end: 20081229

REACTIONS (2)
  - METAMORPHOPSIA [None]
  - TRIGEMINAL NEURALGIA [None]
